FAERS Safety Report 7466304-3 (Version None)
Quarter: 2011Q2

REPORT INFORMATION
  Report Type: 
  Country: None (occurrence: None)
  Receive Date: 20110505
  Receipt Date: 20110505
  Transmission Date: 20111010
  Serious: Yes (Hospitalization)
  Sender: FDA-Public Use
  Company Number: None

PATIENT
  Sex: Male
  Weight: 111.13 kg

DRUGS (16)
  1. DAPTOMYCIN [Suspect]
     Indication: CELLULITIS
     Dosage: 700MG ONCE DAILY IV
     Route: 042
     Dates: start: 20110424, end: 20110429
  2. PLAVIX [Concomitant]
  3. LANTUS [Concomitant]
  4. NORVASC [Concomitant]
  5. MULTI-VITAMIN [Concomitant]
  6. NIASPAN [Concomitant]
  7. CRESTOR [Concomitant]
  8. INVANZ [Concomitant]
  9. CLONIDINE [Concomitant]
  10. TENEX [Concomitant]
  11. METFORMIN HCL [Concomitant]
  12. DEPAKOTE [Concomitant]
  13. ASPIRIN [Concomitant]
  14. BENICAR [Concomitant]
  15. LOVAZA [Concomitant]
  16. COREG [Concomitant]

REACTIONS (6)
  - DYSSTASIA [None]
  - PARAESTHESIA [None]
  - NEUROPATHY PERIPHERAL [None]
  - ORTHOPNOEA [None]
  - HYPOAESTHESIA [None]
  - FALL [None]
